FAERS Safety Report 10173070 (Version 1)
Quarter: 2014Q2

REPORT INFORMATION
  Report Type: Spontaneous
  Country: US (occurrence: None)
  Receive Date: 20140514
  Receipt Date: 20140514
  Transmission Date: 20141212
  Serious: Yes (Death)
  Sender: FDA-Public Use
  Company Number: None

PATIENT
  Age: 69 Year
  Sex: Female
  Weight: 69.85 kg

DRUGS (2)
  1. LEVOFLOXACIN [Suspect]
     Indication: INFECTION
     Route: 048
     Dates: start: 20140324, end: 20140403
  2. LEVOFLOXACIN [Suspect]
     Route: 048
     Dates: start: 20140324, end: 20140403

REACTIONS (4)
  - Muscular weakness [None]
  - Muscular weakness [None]
  - Pain [None]
  - Red blood cell sedimentation rate increased [None]
